FAERS Safety Report 23461304 (Version 1)
Quarter: 2024Q1

REPORT INFORMATION
  Report Type: Spontaneous
  Country: US (occurrence: None)
  Receive Date: 20240130
  Receipt Date: 20240130
  Transmission Date: 20240409
  Serious: Yes (Hospitalization, Other)
  Sender: FDA-Public Use
  Company Number: None

PATIENT
  Age: 83 Year
  Sex: Male
  Weight: 75.6 kg

DRUGS (2)
  1. AZITHROMYCIN [Suspect]
     Active Substance: AZITHROMYCIN
     Indication: Pneumonia
     Dosage: FREQUENCY : DAILY;?
     Route: 048
     Dates: start: 20240123, end: 20240123
  2. dronaderone [Concomitant]
     Dates: start: 20231218

REACTIONS (9)
  - Transcription medication error [None]
  - Drug monitoring procedure not performed [None]
  - Product use issue [None]
  - Drug interaction [None]
  - Contraindicated product administered [None]
  - Malaise [None]
  - Hypoxia [None]
  - Refusal of treatment by patient [None]
  - Atrial fibrillation [None]

NARRATIVE: CASE EVENT DATE: 20240123
